FAERS Safety Report 8184981-9 (Version None)
Quarter: 2012Q1

REPORT INFORMATION
  Report Type: 
  Country: None (occurrence: None)
  Receive Date: 20120305
  Receipt Date: 20120227
  Transmission Date: 20120608
  Serious: Yes (Other)
  Sender: FDA-Public Use
  Company Number: JP-GLAXOSMITHKLINE-B0785312A

PATIENT

DRUGS (9)
  1. PAXIL [Suspect]
     Dosage: 15MG PER DAY
     Route: 048
  2. PAXIL [Suspect]
     Dosage: 5MG PER DAY
     Route: 048
  3. ALPRAZOLAM [Concomitant]
     Dosage: .4MG PER DAY
     Route: 048
     Dates: start: 20110515, end: 20110515
  4. PAXIL [Suspect]
     Indication: PRODUCT USED FOR UNKNOWN INDICATION
     Dosage: 20MG PER DAY
     Route: 048
  5. ALPRAZOLAM [Concomitant]
     Route: 048
  6. SEPAZON [Concomitant]
     Dosage: .5IUAX PER DAY
     Route: 048
     Dates: start: 20110514, end: 20110514
  7. PAXIL [Suspect]
     Dosage: 10MG PER DAY
     Route: 048
  8. SEPAZON [Concomitant]
     Dosage: 1IUAX PER DAY
     Route: 048
     Dates: start: 20110519, end: 20110519
  9. SILECE [Concomitant]
     Route: 048

REACTIONS (43)
  - VISION BLURRED [None]
  - DISCOMFORT [None]
  - GAIT DISTURBANCE [None]
  - NIGHTMARE [None]
  - EMOTIONAL DISTRESS [None]
  - CRYING [None]
  - BED REST [None]
  - NAUSEA [None]
  - FEAR [None]
  - SYMPATHICOTONIA [None]
  - CHILLS [None]
  - TREMOR [None]
  - TINNITUS [None]
  - PARAESTHESIA [None]
  - FACE OEDEMA [None]
  - RESTLESSNESS [None]
  - PANIC ATTACK [None]
  - MIDDLE INSOMNIA [None]
  - SOMNOLENCE [None]
  - DIPLOPIA [None]
  - IRRITABILITY [None]
  - HYPERPHAGIA [None]
  - DRUG WITHDRAWAL SYNDROME [None]
  - WEIGHT INCREASED [None]
  - HEADACHE [None]
  - HYPERHIDROSIS [None]
  - DIZZINESS [None]
  - ANXIETY [None]
  - ABNORMAL SENSATION IN EYE [None]
  - DEPRESSED MOOD [None]
  - INSOMNIA [None]
  - FATIGUE [None]
  - DYSARTHRIA [None]
  - BACK PAIN [None]
  - DEPRESSED LEVEL OF CONSCIOUSNESS [None]
  - DYSPNOEA [None]
  - ASTHENIA [None]
  - FEELING ABNORMAL [None]
  - DECREASED APPETITE [None]
  - AKINESIA [None]
  - PALPITATIONS [None]
  - BLOOD PRESSURE INCREASED [None]
  - HYPOAESTHESIA [None]
